FAERS Safety Report 7522760-3 (Version None)
Quarter: 2011Q2

REPORT INFORMATION
  Report Type: 
  Country: None (occurrence: None)
  Receive Date: 20110603
  Receipt Date: 20110504
  Transmission Date: 20111010
  Serious: Yes (Other)
  Sender: FDA-Public Use
  Company Number: US-BAYER-201035217NA

PATIENT
  Age: 23 Year
  Sex: Female
  Weight: 81.633 kg

DRUGS (2)
  1. ALBUTEROL SULFATE AUTOHALER [Concomitant]
  2. YASMIN [Suspect]
     Indication: CONTRACEPTION
     Dosage: UNK
     Route: 048
     Dates: start: 20060101, end: 20090301

REACTIONS (4)
  - GALLBLADDER DISORDER [None]
  - PROCEDURAL PAIN [None]
  - DYSPEPSIA [None]
  - ABDOMINAL PAIN UPPER [None]
